FAERS Safety Report 18900470 (Version 2)
Quarter: 2021Q3

REPORT INFORMATION
  Report Type: Spontaneous
  Country: US (occurrence: US)
  Receive Date: 20210216
  Receipt Date: 20210805
  Transmission Date: 20211014
  Serious: Yes (Other)
  Sender: FDA-Public Use
  Company Number: US-TEVA-2021-US-1879733

PATIENT
  Age: 15 Year
  Sex: Female

DRUGS (4)
  1. METHOTREXATE. [Suspect]
     Active Substance: METHOTREXATE
     Indication: JUVENILE IDIOPATHIC ARTHRITIS
     Route: 065
  2. ETANERCEPT [Suspect]
     Active Substance: ETANERCEPT
     Indication: JUVENILE IDIOPATHIC ARTHRITIS
     Route: 065
  3. ABATACEPT [Suspect]
     Active Substance: ABATACEPT
     Indication: JUVENILE IDIOPATHIC ARTHRITIS
     Route: 065
  4. INFLIXIMAB [Suspect]
     Active Substance: INFLIXIMAB
     Indication: JUVENILE IDIOPATHIC ARTHRITIS
     Route: 065

REACTIONS (2)
  - Drug ineffective [Unknown]
  - Multiple sclerosis [Unknown]
